FAERS Safety Report 23458702 (Version 2)
Quarter: 2024Q1

REPORT INFORMATION
  Report Type: Report from Study
  Country: NL (occurrence: NL)
  Receive Date: 20240130
  Receipt Date: 20240209
  Transmission Date: 20240409
  Serious: Yes (Other)
  Sender: FDA-Public Use
  Company Number: NL-ABBVIE-5613928

PATIENT

DRUGS (1)
  1. LEUPROLIDE ACETATE [Suspect]
     Active Substance: LEUPROLIDE ACETATE
     Indication: Product used for unknown indication
     Route: 065

REACTIONS (5)
  - Endometriosis [Unknown]
  - Stress [Recovered/Resolved]
  - Adenomyosis [Unknown]
  - Gastrointestinal disorder [Unknown]
  - Gait inability [Unknown]

NARRATIVE: CASE EVENT DATE: 20221001
